FAERS Safety Report 5883782-1 (Version None)
Quarter: 2008Q3

REPORT INFORMATION
  Report Type: 
  Country: None (occurrence: None)
  Receive Date: 20080915
  Receipt Date: 20080905
  Transmission Date: 20090109
  Serious: Yes (Death, Hospitalization, Other)
  Sender: FDA-Public Use
  Company Number: A0701784A

PATIENT
  Age: 38 Year
  Sex: Female
  Weight: 76.6 kg

DRUGS (1)
  1. LAPATINIB [Suspect]
     Dosage: 1500MG PER DAY
     Route: 048
     Dates: start: 20071221, end: 20071226

REACTIONS (4)
  - DEATH [None]
  - DYSPNOEA [None]
  - FAILURE TO THRIVE [None]
  - HYPERCALCAEMIA [None]
